FAERS Safety Report 14707872 (Version 3)
Quarter: 2018Q4

REPORT INFORMATION
  Report Type: Spontaneous
  Country: US (occurrence: US)
  Receive Date: 20180403
  Receipt Date: 20181226
  Transmission Date: 20190204
  Serious: Yes (Hospitalization)
  Sender: FDA-Public Use
  Company Number: US-PFIZER INC-2017231089

PATIENT
  Age: 63 Year
  Sex: Female

DRUGS (5)
  1. ACCUPRIL [Suspect]
     Active Substance: QUINAPRIL HYDROCHLORIDE
     Dosage: 10 MG, TWICE DAILY (AT 1AM AND 1PM)
     Route: 048
  2. ACCUPRIL [Suspect]
     Active Substance: QUINAPRIL HYDROCHLORIDE
     Dosage: UNK
     Dates: start: 1995
  3. ACCUPRIL [Suspect]
     Active Substance: QUINAPRIL HYDROCHLORIDE
     Dosage: 30 MG, UNK
  4. ACCUPRIL [Suspect]
     Active Substance: QUINAPRIL HYDROCHLORIDE
     Dosage: 20 MG, UNK
  5. ACCUPRIL [Suspect]
     Active Substance: QUINAPRIL HYDROCHLORIDE
     Dosage: 20 MG, TWICE DAILY (AT 1:00AM AND 1:00PM)

REACTIONS (5)
  - Infection [Unknown]
  - Malaise [Unknown]
  - Intentional product misuse [Unknown]
  - Blood pressure abnormal [Unknown]
  - Intervertebral disc protrusion [Unknown]
